FAERS Safety Report 13500228 (Version 3)
Quarter: 2018Q3

REPORT INFORMATION
  Report Type: Report from Study
  Country: US (occurrence: US)
  Receive Date: 20170501
  Receipt Date: 20180815
  Transmission Date: 20181010
  Serious: Yes (Death)
  Sender: FDA-Public Use
  Company Number: US-KERYX BIOPHARMACEUTICALS, INC.-2017US002776

PATIENT
  Sex: Male
  Weight: 90.25 kg

DRUGS (29)
  1. MULTIVITAMIN                       /00097801/ [Concomitant]
     Active Substance: VITAMINS
     Dosage: 1 TAB, QD
     Route: 065
  2. SIMVASTATIN. [Concomitant]
     Active Substance: SIMVASTATIN
     Dosage: 20 MG, QD
     Route: 065
  3. ASA [Concomitant]
     Active Substance: ASPIRIN
     Dosage: 81 MG, QD
     Route: 065
  4. VITAMIN D3 [Concomitant]
     Active Substance: CHOLECALCIFEROL
     Dosage: 1000 U, QD
     Route: 065
  5. PNEUMOVAX 23 [Concomitant]
     Active Substance: PNEUMOCOCCAL VACCINE, POLYVALENT 23
     Dosage: 0.5 ML, PRN
     Route: 065
  6. AURYXIA [Suspect]
     Active Substance: TETRAFERRIC TRICITRATE DECAHYDRATE
     Indication: HYPERPHOSPHATAEMIA
     Dosage: 6 G (6 TAB), QD
     Route: 048
     Dates: start: 20170111
  7. EPOETIN [Concomitant]
     Active Substance: ERYTHROPOIETIN
     Dosage: 300 UNIT, EVERY SCHEDULED DIALYSIS
  8. COUMADIN [Concomitant]
     Active Substance: WARFARIN SODIUM
     Dosage: 2 MG, QD
     Route: 065
  9. THROMBOSTAT [Concomitant]
     Active Substance: THROMBIN
     Dosage: 1:1000, PRN
     Route: 065
  10. PACERONE [Concomitant]
     Active Substance: AMIODARONE HYDROCHLORIDE
     Dosage: 200 MG, QD
     Route: 065
  11. VITAMIN B12 [Concomitant]
     Active Substance: CYANOCOBALAMIN
     Dosage: 2500 MICRO?G, QD
     Route: 065
  12. PROTEIN [Concomitant]
     Active Substance: PROTEIN
     Dosage: 30 G, QD
     Route: 065
  13. OMEPRAZOLE. [Concomitant]
     Active Substance: OMEPRAZOLE
     Dosage: 20 MG, QD
     Route: 065
  14. METOPROLOL SUCCINATE. [Concomitant]
     Active Substance: METOPROLOL SUCCINATE
     Dosage: 25 MG, QHS
     Route: 065
  15. TYLENOL [Concomitant]
     Active Substance: ACETAMINOPHEN
     Dosage: 325 MG, PRN
     Route: 048
  16. MANNITOL. [Concomitant]
     Active Substance: MANNITOL
     Dosage: 12.5 G, PRN
     Route: 065
  17. HEPATITIS B VACCINE [Concomitant]
     Active Substance: HEPATITIS B VIRUS VACCINE
     Dosage: 40 MICRO?G, SERIES, PRN
     Route: 065
  18. HECTOROL [Concomitant]
     Active Substance: DOXERCALCIFEROL
     Dosage: 3.5 MICRO?G, EVERY SCHEDULED DIALYSIS
     Route: 065
  19. ZYRTEC [Concomitant]
     Active Substance: CETIRIZINE HYDROCHLORIDE
     Dosage: 10 MG, QD
     Route: 065
  20. NOVOLOG [Concomitant]
     Active Substance: INSULIN ASPART
     Dosage: 10 UNIT, TID
     Route: 065
  21. INFLUENZA VACCINE [Concomitant]
     Active Substance: INFLUENZA VIRUS VACCINE
     Dosage: 0.5 ML, PRN
     Route: 065
  22. LEVEMIR [Concomitant]
     Active Substance: INSULIN DETEMIR
     Dosage: 10 UNIT, BID
     Route: 065
  23. CILOSTAZOL. [Concomitant]
     Active Substance: CILOSTAZOL
     Dosage: 100 MG, BID
     Route: 065
  24. DEXTROSE. [Concomitant]
     Active Substance: DEXTROSE
     Dosage: 1 AMP, PRN
     Route: 065
  25. HEPATITIS B VACCINE [Concomitant]
     Active Substance: HEPATITIS B VIRUS VACCINE
     Dosage: 40 MICRO?G, BOOSTER, PRN
     Route: 065
  26. EPOETIN [Concomitant]
     Active Substance: ERYTHROPOIETIN
     Dosage: 500 UNIT, EVERY SCHEDULED DIALYSIS
     Route: 065
  27. RENVELA [Concomitant]
     Active Substance: SEVELAMER CARBONATE
     Dosage: 3200 MG, CC WITH MEAL
     Route: 065
  28. SYNTHROID [Concomitant]
     Active Substance: LEVOTHYROXINE SODIUM
     Dosage: 150 MICRO?G, QHS
     Route: 065
  29. PPD DISPOSABLE [Concomitant]
     Active Substance: TUBERCULIN PURIFIED PROTEIN DERIVATIVE
     Dosage: 0.1 ML, PRN
     Route: 065

REACTIONS (4)
  - Decreased appetite [Unknown]
  - Dyspnoea [Unknown]
  - Abdominal pain upper [Unknown]
  - Cardiac arrest [Fatal]
